FAERS Safety Report 4825859-5 (Version None)
Quarter: 2005Q4

REPORT INFORMATION
  Report Type: 
  Country: None (occurrence: None)
  Receive Date: 20051109
  Receipt Date: 20051025
  Transmission Date: 20060501
  Serious: Yes (Other)
  Sender: FDA-Public Use
  Company Number: 200510IM000662

PATIENT
  Age: 56 Year
  Sex: Male
  Weight: 67.1324 kg

DRUGS (2)
  1. INFERGEN [Suspect]
     Indication: HEPATITIS C
     Dosage: 15 UG, QD, SUBCUTANEOUS
     Route: 058
     Dates: start: 20040914, end: 20050815
  2. RIBAVIRIN [Concomitant]

REACTIONS (5)
  - DIABETES MELLITUS [None]
  - ECONOMIC PROBLEM [None]
  - HYPERTENSION [None]
  - TREATMENT NONCOMPLIANCE [None]
  - VIRAL LOAD INCREASED [None]
